FAERS Safety Report 8017500-8 (Version None)
Quarter: 2011Q4

REPORT INFORMATION
  Report Type: 
  Country: None (occurrence: None)
  Receive Date: 20111228
  Receipt Date: 20111228
  Transmission Date: 20120403
  Serious: No
  Sender: FDA-Public Use
  Company Number: None

PATIENT
  Age: 83 Year
  Sex: Female
  Weight: 53.0709 kg

DRUGS (1)
  1. CIPROFLOXACIN [Suspect]
     Indication: KIDNEY INFECTION
     Dosage: 2 PER DAY
     Dates: start: 20111110

REACTIONS (2)
  - ARTHRALGIA [None]
  - MUSCLE SPASMS [None]
